FAERS Safety Report 12570295 (Version 2)
Quarter: 2016Q3

REPORT INFORMATION
  Report Type: Report from Study
  Country: US (occurrence: US)
  Receive Date: 20160719
  Receipt Date: 20160922
  Transmission Date: 20161109
  Serious: Yes (Death, Other)
  Sender: FDA-Public Use
  Company Number: US-BAYER-2016-129551

PATIENT
  Age: 79 Year
  Sex: Male
  Weight: 44.44 kg

DRUGS (4)
  1. ADEMPAS [Suspect]
     Active Substance: RIOCIGUAT
     Indication: IDIOPATHIC PULMONARY FIBROSIS
     Dosage: 1 MG, TID
     Route: 048
     Dates: start: 20160624
  2. ADEMPAS [Suspect]
     Active Substance: RIOCIGUAT
     Indication: IDIOPATHIC PULMONARY FIBROSIS
     Dosage: 0.5 MG, QD
     Route: 048
  3. ADEMPAS [Suspect]
     Active Substance: RIOCIGUAT
     Indication: IDIOPATHIC PULMONARY FIBROSIS
     Dosage: 1 MG, QD
     Route: 048
  4. ADEMPAS [Suspect]
     Active Substance: RIOCIGUAT
     Indication: IDIOPATHIC PULMONARY FIBROSIS
     Dosage: 1 MG, QD
     Route: 048

REACTIONS (5)
  - Blood pressure decreased [None]
  - Death [Fatal]
  - Blood pressure decreased [Unknown]
  - Drug intolerance [Unknown]
  - Off label use [None]

NARRATIVE: CASE EVENT DATE: 20160709
